FAERS Safety Report 15304924 (Version 1)
Quarter: 2018Q3

REPORT INFORMATION
  Report Type: Spontaneous
  Country: US (occurrence: US)
  Receive Date: 20180809
  Receipt Date: 20180809
  Transmission Date: 20181010
  Serious: Yes (Hospitalization)
  Sender: FDA-Public Use
  Company Number: None

PATIENT
  Age: 86 Year
  Sex: Male
  Weight: 83.9 kg

DRUGS (1)
  1. NIVOLUMAB [Suspect]
     Active Substance: NIVOLUMAB
     Indication: COLON CANCER METASTATIC
     Dosage: EVERY 2 WEEKS
     Route: 040
     Dates: start: 20180130, end: 20180501

REACTIONS (3)
  - Myasthenia gravis [None]
  - Drug ineffective [None]
  - Eyelid ptosis [None]

NARRATIVE: CASE EVENT DATE: 20180518
